FAERS Safety Report 9807481 (Version 1)
Quarter: 2014Q1

REPORT INFORMATION
  Report Type: Spontaneous
  Country: US (occurrence: US)
  Receive Date: 20140110
  Receipt Date: 20140110
  Transmission Date: 20141002
  Serious: No
  Sender: FDA-Public Use
  Company Number: US-SANOFI-AVENTIS-2013SA082109

PATIENT
  Age: 76 Year
  Sex: Female
  Weight: 61 kg

DRUGS (12)
  1. PLAVIX [Suspect]
     Indication: VERTIGO
     Dates: end: 20121113
  2. PLAVIX [Suspect]
     Indication: VISION BLURRED
     Dates: end: 20121113
  3. PLAVIX [Suspect]
     Indication: VERTIGO
     Route: 048
     Dates: start: 201304
  4. PLAVIX [Suspect]
     Indication: VISION BLURRED
     Route: 048
     Dates: start: 201304
  5. SIMVASTATIN [Concomitant]
     Dosage: PRODUCT START DATE:-FEW YEARS AGO?LAST DOSE TAKEN:-ABOUT YEARS AGO
  6. LIPITOR [Concomitant]
     Dosage: PRODUCT START DATE:-FEW YEARS AGO?LAST DOSE TAKEN:-ABOUT YEARS AGO
  7. ZOCOR [Concomitant]
     Indication: LIMB DISCOMFORT
  8. CODEINE [Concomitant]
     Indication: VOMITING
  9. CODEINE [Concomitant]
     Indication: MALAISE
  10. SULFUR [Concomitant]
  11. IODINE [Concomitant]
  12. GLYCERYL TRINITRATE [Concomitant]

REACTIONS (2)
  - Vertigo [Recovered/Resolved]
  - Vision blurred [Recovered/Resolved]
